FAERS Safety Report 4875821-1 (Version None)
Quarter: 2006Q1

REPORT INFORMATION
  Report Type: 
  Country: None (occurrence: None)
  Receive Date: 20060106
  Receipt Date: 20051229
  Transmission Date: 20060701
  Serious: Yes (Hospitalization)
  Sender: FDA-Public Use
  Company Number: 13155

PATIENT
  Age: 70 Year
  Sex: Female

DRUGS (3)
  1. HYDROMORPHONE HYDROCHLORIDE [Suspect]
     Indication: ABDOMINAL PAIN
     Dosage: 14.4 MG DAILY
     Dates: start: 20051207, end: 20051220
  2. MORPHINE [Suspect]
     Indication: ABDOMINAL PAIN
     Dosage: 30 MG DAILY PO
     Route: 048
     Dates: start: 20051217, end: 20051220
  3. SB-743921 [Suspect]
     Indication: PANCREATIC CARCINOMA METASTATIC
     Dosage: 6.8 MG Q21DAYS IV
     Route: 042
     Dates: start: 20051114

REACTIONS (4)
  - CONFUSIONAL STATE [None]
  - DIFFICULTY IN WALKING [None]
  - PORTAL VEIN THROMBOSIS [None]
  - SOMNOLENCE [None]
